FAERS Safety Report 17015066 (Version 1)
Quarter: 2019Q4

REPORT INFORMATION
  Report Type: Other
  Country: GB (occurrence: GB)
  Receive Date: 20191111
  Receipt Date: 20191111
  Transmission Date: 20200122
  Serious: Yes (Other)
  Sender: FDA-Public Use
  Company Number: GB-LUPIN PHARMACEUTICALS INC.-2019-07252

PATIENT
  Sex: Female

DRUGS (1)
  1. LEVONORGESTREL TABLET [Suspect]
     Active Substance: LEVONORGESTREL
     Indication: POST COITAL CONTRACEPTION
     Dosage: 1.5 MILLIGRAM, SINGLE
     Route: 065
     Dates: start: 20160310, end: 20160310

REACTIONS (1)
  - Pregnancy on contraceptive [Unknown]
